FAERS Safety Report 9604460 (Version 1)
Quarter: 2013Q4

REPORT INFORMATION
  Report Type: Spontaneous
  Country: CA (occurrence: CA)
  Receive Date: 20131008
  Receipt Date: 20131008
  Transmission Date: 20140711
  Serious: Yes (Hospitalization, Other)
  Sender: FDA-Public Use
  Company Number: CA-ROCHE-1284117

PATIENT
  Age: 14 Year
  Sex: Male
  Weight: 72 kg

DRUGS (62)
  1. VALCYTE [Suspect]
     Indication: PRODUCT USED FOR UNKNOWN INDICATION
     Dosage: THERAPY DURATION:  393.0 DAY(S)
     Route: 048
  2. NEORAL [Suspect]
     Indication: PRODUCT USED FOR UNKNOWN INDICATION
     Dosage: THERAPY DURATION:  387.0 DAY(S)
     Route: 048
  3. FOLIC ACID [Concomitant]
  4. ACETAMINOPHEN [Concomitant]
     Dosage: POWDER FOR SOLUTION
     Route: 065
  5. ACYCLOVIR [Concomitant]
     Route: 065
  6. AMLODIPINE [Concomitant]
  7. AMPHOTERICIN B [Concomitant]
  8. ANTITHYMOCYTE IMMUNOGLOBULIN [Concomitant]
  9. BUDESONIDE [Concomitant]
     Route: 065
  10. VITAMIN D3 [Concomitant]
     Route: 065
  11. CEFTAZIDIME [Concomitant]
     Route: 030
  12. CEFTRIAXONE [Concomitant]
     Dosage: POWDER FOR SOLUTION
     Route: 030
  13. CETIRIZINE [Concomitant]
  14. CHOLECALCIFEROL [Concomitant]
     Route: 065
  15. CLINDAMYCIN [Concomitant]
     Route: 065
  16. CODEINE [Concomitant]
  17. CYCLOPHOSPHAMIDE [Concomitant]
     Dosage: POWDER FOR SOLUTION
     Route: 042
  18. CYTARABINE [Concomitant]
     Route: 065
  19. CYTARABINE [Concomitant]
     Dosage: SOLUTION INTRATHECAL
     Route: 037
  20. DEXAMETHASONE [Concomitant]
     Route: 014
  21. DIMENHYDRINATE [Concomitant]
     Route: 065
  22. DOCUSATE SODIUM [Concomitant]
  23. DOXORUBICIN HYDROCHLORIDE [Concomitant]
  24. ETOPOSIDE [Concomitant]
     Route: 065
  25. FAMCICLOVIR [Concomitant]
     Route: 065
  26. FLUCONAZOLE [Concomitant]
     Route: 065
  27. FOLIC ACID [Concomitant]
     Route: 065
  28. FOSCAVIR [Concomitant]
     Route: 065
  29. GANCICLOVIR [Concomitant]
     Route: 065
  30. HYDROCORTISONE [Concomitant]
     Route: 030
  31. HYDROMORPHONE [Concomitant]
     Route: 065
  32. HYDROXYZINE [Concomitant]
     Route: 065
  33. IMMUNE GLOBULIN, INTRAVENOUS [Concomitant]
     Route: 042
  34. KETAMINE HYDROCHLORIDE [Concomitant]
     Dosage: SOLUTION INTRAMUSCULAR
     Route: 030
  35. L-ASPARAGINASE [Concomitant]
     Route: 030
  36. LANSOPRAZOLE [Concomitant]
     Route: 065
  37. LEUCOVORIN [Concomitant]
     Route: 065
  38. LORAZEPAM [Concomitant]
     Route: 065
  39. MELATONIN [Concomitant]
     Route: 065
  40. MESNA [Concomitant]
     Dosage: SOLUTION
     Route: 042
  41. METHYLPREDNISOLONE [Concomitant]
     Route: 065
  42. METOCLOPRAMIDE [Concomitant]
     Route: 065
  43. MORPHINE [Concomitant]
     Route: 065
  44. MUPIROCIN [Concomitant]
     Route: 061
  45. NALOXONE [Concomitant]
     Route: 065
  46. NIFEDIPINE [Concomitant]
  47. NYSTATIN [Concomitant]
     Route: 065
  48. ONDANSETRON [Concomitant]
     Route: 065
  49. PENICILLIN V [Concomitant]
  50. PREDNISONE [Concomitant]
     Route: 065
  51. QUETIAPINE [Concomitant]
  52. RANITIDINE [Concomitant]
     Route: 065
  53. RITUXAN [Concomitant]
     Route: 042
  54. TIMENTIN (AUSTRALIA) [Concomitant]
     Route: 065
  55. TOBRAMYCIN [Concomitant]
     Route: 065
  56. TRANEXAMIC ACID [Concomitant]
     Route: 065
  57. TRIMETHOPRIM + SULFA [Concomitant]
     Route: 065
  58. URSODEOXYCHOLIC ACID [Concomitant]
     Route: 065
  59. VANCOMYCIN [Concomitant]
     Route: 065
  60. VINCRISTINE SULFATE [Concomitant]
     Route: 065
  61. ZINECARD [Concomitant]
     Route: 065
  62. METHOTREXATE [Concomitant]

REACTIONS (1)
  - Renal failure acute [Recovered/Resolved]
